FAERS Safety Report 8112415-9 (Version None)
Quarter: 2012Q1

REPORT INFORMATION
  Report Type: 
  Country: None (occurrence: None)
  Receive Date: 20120203
  Receipt Date: 20120201
  Transmission Date: 20120608
  Serious: No
  Sender: FDA-Public Use
  Company Number: US-TEVA-320722USA

PATIENT
  Sex: Female
  Weight: 56.75 kg

DRUGS (2)
  1. PLAN B ONE-STEP [Suspect]
     Indication: POST COITAL CONTRACEPTION
     Dosage: 1.5 MILLIGRAM;
     Route: 048
     Dates: start: 20120123, end: 20120123
  2. ZOLOFT [Concomitant]
     Indication: DEPRESSION
     Dosage: 100 MILLIGRAM;
     Route: 048
     Dates: start: 20110101

REACTIONS (1)
  - MENSTRUATION IRREGULAR [None]
